FAERS Safety Report 10566341 (Version 2)
Quarter: 2014Q4

REPORT INFORMATION
  Report Type: Spontaneous
  Country: GB (occurrence: GB)
  Receive Date: 20141105
  Receipt Date: 20141105
  Transmission Date: 20150529
  Serious: Yes (Hospitalization, Other)
  Sender: FDA-Public Use
  Company Number: PHFR2014GB005639

PATIENT
  Sex: Female

DRUGS (4)
  1. CLOZARIL [Suspect]
     Active Substance: CLOZAPINE
     Route: 048
     Dates: start: 20141022
  2. CLOZARIL [Suspect]
     Active Substance: CLOZAPINE
     Indication: SCHIZOPHRENIA
     Route: 048
     Dates: start: 20051208
  3. SODIUM VALPROATE [Concomitant]
     Active Substance: VALPROATE SODIUM
     Indication: AFFECTIVE DISORDER
     Dosage: 1000 MG, QD
     Route: 048
  4. CLOZARIL [Suspect]
     Active Substance: CLOZAPINE
     Dosage: FULL DOSE
     Route: 048
     Dates: end: 20140811

REACTIONS (20)
  - Decreased activity [Unknown]
  - Vomiting [Recovered/Resolved]
  - Toxicity to various agents [Unknown]
  - Psychotic disorder [Unknown]
  - Dyspepsia [Unknown]
  - Fall [Recovered/Resolved]
  - Mental impairment [Unknown]
  - Serum ferritin decreased [Unknown]
  - Haemoglobin decreased [Unknown]
  - Urinary tract infection [Recovered/Resolved]
  - Blood folate decreased [Unknown]
  - Blood cholesterol increased [Unknown]
  - Hypertension [Unknown]
  - Diabetes mellitus [Recovering/Resolving]
  - Schizophrenia [Unknown]
  - Large intestinal obstruction [Recovered/Resolved]
  - Blood glucose increased [Recovering/Resolving]
  - Delirium [Recovered/Resolved]
  - Mobility decreased [Recovered/Resolved]
  - Reticulocyte count decreased [Unknown]
